FAERS Safety Report 6617561-4 (Version None)
Quarter: 2010Q1

REPORT INFORMATION
  Report Type: 
  Country: None (occurrence: None)
  Receive Date: 20100223
  Receipt Date: 20091022
  Transmission Date: 20100710
  Serious: No
  Sender: FDA-Public Use
  Company Number: 8053626

PATIENT
  Sex: Male

DRUGS (2)
  1. CERTOLIZUMAB PEGOL (UCB, INC) [Suspect]
     Dosage: SUBCUTANEOUS
     Route: 058
     Dates: start: 20090130
  2. METHADONE HYDROCHLORIDE [Suspect]
     Dosage: 50 MG QOD, 50 MG BID DAILY ORAL
     Route: 048

REACTIONS (1)
  - SLEEP ATTACKS [None]
